FAERS Safety Report 4366976-6 (Version None)
Quarter: 2004Q2

REPORT INFORMATION
  Report Type: 
  Country: None (occurrence: None)
  Receive Date: 20040528
  Receipt Date: 20040107
  Transmission Date: 20050107
  Serious: Yes (Hospitalization)
  Sender: FDA-Public Use
  Company Number: PHFR2004IE00528

PATIENT
  Age: 37 Year
  Sex: Male

DRUGS (5)
  1. CLOZARIL [Suspect]
     Indication: SCHIZOPHRENIA
     Dosage: 550MG/DAY
     Route: 048
     Dates: start: 20030702, end: 20040207
  2. SOLIAN [Concomitant]
     Dosage: 400MG/DAY
     Route: 048
     Dates: start: 20030702
  3. SEROXAT ^SMITHKLINE BEECHAM^ [Concomitant]
     Dosage: 30MG/DAY
     Route: 048
     Dates: start: 20001206
  4. VALPROIC ACID [Concomitant]
     Dosage: 600MG/DAY
     Route: 048
     Dates: start: 20010210
  5. AMITRIPTYLINE HCL [Concomitant]
     Dosage: 50MG/DAY
     Route: 048
     Dates: start: 20031030, end: 20031210

REACTIONS (19)
  - ACIDOSIS [None]
  - BLOOD BILIRUBIN INCREASED [None]
  - BLOOD CALCIUM INCREASED [None]
  - BLOOD GLUCOSE ABNORMAL [None]
  - BLOOD UREA INCREASED [None]
  - CHEST PAIN [None]
  - CIRCULATORY COLLAPSE [None]
  - DIABETIC KETOACIDOSIS [None]
  - DIZZINESS [None]
  - GAMMA-GLUTAMYLTRANSFERASE INCREASED [None]
  - HAEMATEMESIS [None]
  - KETOSIS [None]
  - LIPIDS ABNORMAL [None]
  - NEUTROPHILIA [None]
  - ORTHOSTATIC HYPOTENSION [None]
  - URINE KETONE BODY PRESENT [None]
  - VOMITING [None]
  - WEIGHT DECREASED [None]
  - WHITE BLOOD CELL COUNT INCREASED [None]
